FAERS Safety Report 7924722-0 (Version None)
Quarter: 2011Q4

REPORT INFORMATION
  Report Type: 
  Country: None (occurrence: None)
  Receive Date: 20111118
  Receipt Date: 20110325
  Transmission Date: 20120403
  Serious: No
  Sender: FDA-Public Use
  Company Number: US-AMGEN-TCS404161

PATIENT
  Age: 63 Year
  Sex: Female

DRUGS (1)
  1. ENBREL [Suspect]
     Indication: RHEUMATOID ARTHRITIS
     Dosage: 25 MG, QWK
     Route: 058
     Dates: start: 20070101

REACTIONS (14)
  - INJECTION SITE VESICLES [None]
  - SINUSITIS [None]
  - STOMATITIS [None]
  - ARTHROPOD BITE [None]
  - INJECTION SITE SWELLING [None]
  - OSTEOARTHRITIS [None]
  - SYNOVITIS [None]
  - WEIGHT FLUCTUATION [None]
  - INJECTION SITE PRURITUS [None]
  - EAR INFECTION [None]
  - DIARRHOEA [None]
  - INJECTION SITE WARMTH [None]
  - INJECTION SITE REACTION [None]
  - INJECTION SITE ERYTHEMA [None]
